FAERS Safety Report 11800359 (Version 1)
Quarter: 2015Q4

REPORT INFORMATION
  Report Type: Spontaneous
  Country: US (occurrence: US)
  Receive Date: 20151203
  Receipt Date: 20151203
  Transmission Date: 20160305
  Serious: No
  Sender: FDA-Public Use
  Company Number: US-ASTRAZENECA-2015SF18606

PATIENT
  Sex: Female
  Weight: 102.1 kg

DRUGS (4)
  1. AMOLOPRIL [Concomitant]
     Indication: BLOOD PRESSURE ABNORMAL
  2. FENOFIBRATE. [Concomitant]
     Active Substance: FENOFIBRATE
  3. BYETTA [Suspect]
     Active Substance: EXENATIDE
     Route: 058
  4. GLIMEPIRIDE. [Concomitant]
     Active Substance: GLIMEPIRIDE

REACTIONS (6)
  - Weight decreased [Unknown]
  - Underdose [Unknown]
  - Hypophagia [Unknown]
  - Product quality issue [Unknown]
  - Nausea [Unknown]
  - Intentional device misuse [Unknown]
